FAERS Safety Report 23679329 (Version 3)
Quarter: 2024Q2

REPORT INFORMATION
  Report Type: Report from Study
  Country: US (occurrence: US)
  Receive Date: 20240327
  Receipt Date: 20240420
  Transmission Date: 20240715
  Serious: No
  Sender: FDA-Public Use
  Company Number: US-AMGEN-USASP2024061391

PATIENT
  Age: 70 Year
  Sex: Male

DRUGS (1)
  1. REPATHA [Suspect]
     Active Substance: EVOLOCUMAB
     Indication: Type IIa hyperlipidaemia
     Dosage: 140 MILLIGRAM, Q2WK
     Route: 065
     Dates: start: 2024

REACTIONS (6)
  - Pain in extremity [Unknown]
  - Arthralgia [Unknown]
  - Back pain [Unknown]
  - Tendon injury [Unknown]
  - Dysstasia [Unknown]
  - Device use error [Unknown]

NARRATIVE: CASE EVENT DATE: 20240101
